FAERS Safety Report 17566903 (Version 1)
Quarter: 2020Q1

REPORT INFORMATION
  Report Type: Spontaneous
  Country: GB (occurrence: GB)
  Receive Date: 20200320
  Receipt Date: 20200320
  Transmission Date: 20200409
  Serious: Yes (Death)
  Sender: FDA-Public Use
  Company Number: GB-MYLANLABS-2020M1030262

PATIENT
  Age: 58 Year
  Sex: Male
  Weight: 94 kg

DRUGS (13)
  1. GABAPENTIN. [Concomitant]
     Active Substance: GABAPENTIN
     Dosage: 300 MILLIGRAM(ONE TAB DAILY FOR 3 DAYS, ONE TWICE A DAY FOR 3 DAYS THEN 3 TIMES A DAY FOR THR)
     Dates: start: 20191112
  2. STEXEROL D3 [Concomitant]
     Dosage: UNK(2 TABLETS ONCE WEEKLY FOR SIX WEEKS THEN ONE MONTHLY)
     Dates: start: 20191216
  3. COCODAMOL [Concomitant]
     Active Substance: ACETAMINOPHEN\CODEINE PHOSPHATE
     Dosage: 1-2 TABLETS UP TO FOUR TIMES DAILY
     Dates: start: 20200114
  4. FINASTERIDE. [Concomitant]
     Active Substance: FINASTERIDE
     Dosage: 5 MILLIGRAM, QD
     Dates: start: 20191024
  5. TAMSULOSIN [Concomitant]
     Active Substance: TAMSULOSIN
     Dosage: 400 MICROGRAM, QD(AS ADVISED BY UROLOGY)
     Dates: start: 20191031
  6. SILDENAFIL. [Concomitant]
     Active Substance: SILDENAFIL
     Dosage: 100 MILLIGRAM(SLS AS DIRECTED)
     Dates: start: 20191031
  7. TRAMADOL. [Suspect]
     Active Substance: TRAMADOL
     Indication: DYSURIA
     Dosage: 50 MILLIGRAM
     Route: 048
  8. AMITRIPTYLINE [Concomitant]
     Active Substance: AMITRIPTYLINE
     Dosage: 50 MILLIGRAM, QD(AT NIGHT)
     Dates: start: 20191024, end: 20191112
  9. IBUPROFEN. [Concomitant]
     Active Substance: IBUPROFEN
     Dosage: 1200 MILLIGRAM, QD
     Dates: start: 20191031
  10. SERTRALINE [Concomitant]
     Active Substance: SERTRALINE HYDROCHLORIDE
     Dosage: 50 MILLIGRAM, QD
     Dates: start: 20191112
  11. MIRTAZAPINE. [Concomitant]
     Active Substance: MIRTAZAPINE
     Dosage: 30 MILLIGRAM, QD(AT NIGHT)
     Dates: start: 20191024
  12. NITROFURANTOIN. [Concomitant]
     Active Substance: NITROFURANTOIN
     Dosage: 50 MILLIGRAM, QD
     Dates: start: 20191031
  13. OMEPRAZOLE. [Concomitant]
     Active Substance: OMEPRAZOLE
     Dosage: 20 MILLIGRAM, QD
     Dates: start: 20191031

REACTIONS (1)
  - Delirium [Fatal]

NARRATIVE: CASE EVENT DATE: 20200114
